FAERS Safety Report 9725135 (Version 1)
Quarter: 2013Q4

REPORT INFORMATION
  Report Type: Spontaneous
  Country: US (occurrence: US)
  Receive Date: 20131203
  Receipt Date: 20131203
  Transmission Date: 20140711
  Serious: No
  Sender: FDA-Public Use
  Company Number: US-BIOGENIDEC-2013BI114667

PATIENT
  Sex: Female

DRUGS (2)
  1. AVONEX [Suspect]
     Indication: MULTIPLE SCLEROSIS
     Route: 030
     Dates: start: 20090601, end: 2012
  2. AVONEX [Suspect]
     Indication: MULTIPLE SCLEROSIS
     Route: 030
     Dates: start: 2012, end: 20131115

REACTIONS (8)
  - Abnormal loss of weight [Unknown]
  - Meibomian gland dysfunction [Recovered/Resolved]
  - Keratitis [Recovered/Resolved]
  - Temperature intolerance [Recovered/Resolved]
  - Psychomotor hyperactivity [Recovered/Resolved]
  - Hyperthyroidism [Not Recovered/Not Resolved]
  - Anxiety [Recovered/Resolved]
  - Insomnia [Recovered/Resolved]
